FAERS Safety Report 5258327-X (Version None)
Quarter: 2007Q1

REPORT INFORMATION
  Report Type: 
  Country: None (occurrence: None)
  Receive Date: 20070308
  Receipt Date: 20070228
  Transmission Date: 20070707
  Serious: Yes (Other)
  Sender: FDA-Public Use
  Company Number: CA-JNJFOC-20060704572

PATIENT
  Sex: Male

DRUGS (5)
  1. DURAGESIC-100 [Suspect]
     Indication: PAIN
     Route: 062
  2. VALIUM [Concomitant]
     Route: 065
  3. WELLBUTRIN [Concomitant]
     Indication: DEPRESSION
     Dosage: TAKEN REGULARLY
     Route: 065
  4. PROZAC [Concomitant]
     Indication: DEPRESSION
     Dosage: TAKEN REGULARLY
     Route: 065
  5. MAGNESIUM LACTULOSE [Concomitant]
     Dosage: AS REQUIRED
     Route: 065

REACTIONS (10)
  - APHASIA [None]
  - ASTHENIA [None]
  - BREATH HOLDING [None]
  - CHILLS [None]
  - CONVULSION [None]
  - COUGH [None]
  - FEELING COLD [None]
  - HYPERHIDROSIS [None]
  - HYPOKINESIA [None]
  - INAPPROPRIATE SCHEDULE OF DRUG ADMINISTRATION [None]
